FAERS Safety Report 5122763-2 (Version None)
Quarter: 2006Q4

REPORT INFORMATION
  Report Type: 
  Country: None (occurrence: None)
  Receive Date: 20061009
  Receipt Date: 20060926
  Transmission Date: 20070319
  Serious: Yes (Other)
  Sender: FDA-Public Use
  Company Number: PHEH2006US12190

PATIENT
  Age: 52 Year
  Sex: Female

DRUGS (5)
  1. FEMARA [Suspect]
     Indication: BREAST CANCER
     Dosage: 2.5 MG, QD
     Route: 048
     Dates: start: 20060501, end: 20060601
  2. LEVOTHYROXINE SODIUM [Concomitant]
     Indication: THYROID DISORDER
  3. WELLBUTRIN [Concomitant]
     Indication: DEPRESSION
  4. ENALAPRIL MALEATE [Concomitant]
     Indication: HYPERTENSION
  5. HYDROCHLOROTHIAZDE TAB [Concomitant]
     Indication: HYPERTENSION

REACTIONS (3)
  - MENSTRUAL DISORDER [None]
  - MOOD SWINGS [None]
  - UTERINE DILATION AND CURETTAGE [None]
